FAERS Safety Report 18236198 (Version 4)
Quarter: 2020Q3

REPORT INFORMATION
  Report Type: Other
  Country: TR (occurrence: TR)
  Receive Date: 20200906
  Receipt Date: 20200923
  Transmission Date: 20201103
  Serious: No
  Sender: FDA-Public Use
  Company Number: TR-ROCHE-2667438

PATIENT
  Age: 19 Year
  Sex: Female
  Weight: 95 kg

DRUGS (21)
  1. OCRELIZUMAB. [Suspect]
     Active Substance: OCRELIZUMAB
     Indication: PRIMARY PROGRESSIVE MULTIPLE SCLEROSIS
     Route: 042
     Dates: start: 20200429, end: 20200429
  2. OCRELIZUMAB. [Suspect]
     Active Substance: OCRELIZUMAB
     Route: 042
     Dates: start: 20190402, end: 20190402
  3. METHYLPREDNISOLONE. [Concomitant]
     Active Substance: METHYLPREDNISOLONE
     Route: 042
     Dates: start: 20190402, end: 20190402
  4. PANTOPRAZOLE [Concomitant]
     Active Substance: PANTOPRAZOLE
     Route: 042
     Dates: start: 20190418, end: 20190418
  5. TAVANIC [Concomitant]
     Active Substance: LEVOFLOXACIN
     Route: 048
     Dates: start: 20200120, end: 20200120
  6. AVIL [Concomitant]
     Active Substance: PHENIRAMINE
     Dosage: 1 AMPULE
     Route: 042
     Dates: start: 20190418, end: 20190418
  7. OCRELIZUMAB. [Suspect]
     Active Substance: OCRELIZUMAB
     Route: 042
     Dates: start: 20191017, end: 20191017
  8. VOLTAREN [Concomitant]
     Active Substance: DICLOFENAC SODIUM
     Route: 061
     Dates: start: 20200305, end: 20200305
  9. ETOL FORT [Concomitant]
     Active Substance: ETODOLAC
     Route: 048
  10. MUSCOFLEX [Concomitant]
     Active Substance: THIOCOLCHICOSIDE
     Route: 048
     Dates: start: 20200305, end: 20200305
  11. AVIL [Concomitant]
     Active Substance: PHENIRAMINE
     Dosage: 1 AMPULE
     Route: 042
     Dates: start: 20200429, end: 20200429
  12. PANTOPRAZOLE [Concomitant]
     Active Substance: PANTOPRAZOLE
     Route: 042
     Dates: start: 20190402, end: 20190402
  13. ENFLUVIR [Concomitant]
     Active Substance: OSELTAMIVIR PHOSPHATE
     Route: 048
     Dates: start: 20200120, end: 20200120
  14. OCRELIZUMAB. [Suspect]
     Active Substance: OCRELIZUMAB
     Route: 042
     Dates: start: 20190418, end: 20190418
  15. METHYLPREDNISOLONE. [Concomitant]
     Active Substance: METHYLPREDNISOLONE
     Route: 042
     Dates: start: 20200429
  16. AVIL [Concomitant]
     Active Substance: PHENIRAMINE
     Dosage: 1 AMPULE
     Route: 042
     Dates: start: 20191017, end: 20191017
  17. METHYLPREDNISOLONE. [Concomitant]
     Active Substance: METHYLPREDNISOLONE
     Route: 042
     Dates: start: 20190418, end: 20190418
  18. METHYLPREDNISOLONE. [Concomitant]
     Active Substance: METHYLPREDNISOLONE
     Route: 042
     Dates: start: 20191017
  19. PANTOPRAZOLE [Concomitant]
     Active Substance: PANTOPRAZOLE
     Route: 042
     Dates: start: 20200429, end: 20200429
  20. AVIL [Concomitant]
     Active Substance: PHENIRAMINE
     Dosage: 1 AMPULE
     Route: 042
     Dates: start: 20190402, end: 20190402
  21. PANTOPRAZOLE [Concomitant]
     Active Substance: PANTOPRAZOLE
     Route: 042
     Dates: start: 20191017, end: 20191017

REACTIONS (1)
  - COVID-19 [Recovered/Resolved]

NARRATIVE: CASE EVENT DATE: 20200823
